FAERS Safety Report 25270213 (Version 2)
Quarter: 2025Q2

REPORT INFORMATION
  Report Type: Spontaneous
  Country: US (occurrence: US)
  Receive Date: 20250505
  Receipt Date: 20250508
  Transmission Date: 20250717
  Serious: No
  Sender: PFIZER
  Company Number: US-PFIZER INC-PV202500052973

PATIENT
  Age: 36 Year
  Sex: Female

DRUGS (1)
  1. XELJANZ [Suspect]
     Active Substance: TOFACITINIB CITRATE
     Dates: start: 2023

REACTIONS (2)
  - Acne [Recovering/Resolving]
  - Weight increased [Not Recovered/Not Resolved]
